FAERS Safety Report 10441602 (Version 2)
Quarter: 2014Q4

REPORT INFORMATION
  Report Type: Spontaneous
  Country: CO (occurrence: CO)
  Receive Date: 20140908
  Receipt Date: 20141007
  Transmission Date: 20150528
  Serious: Yes (Other)
  Sender: FDA-Public Use
  Company Number: PHHY2014CO115244

PATIENT
  Age: 70 Year
  Sex: Female
  Weight: 62 kg

DRUGS (1)
  1. EXFORGE [Suspect]
     Active Substance: AMLODIPINE BESYLATE\VALSARTAN
     Indication: HYPERTENSION
     Dosage: 1 DF
     Route: 048

REACTIONS (4)
  - Vasculitis [Unknown]
  - Petechiae [Not Recovered/Not Resolved]
  - Chest pain [Unknown]
  - Rash papular [Unknown]

NARRATIVE: CASE EVENT DATE: 20140820
